FAERS Safety Report 8229851-2 (Version None)
Quarter: 2012Q1

REPORT INFORMATION
  Report Type: 
  Country: None (occurrence: None)
  Receive Date: 20120323
  Receipt Date: 20120313
  Transmission Date: 20120608
  Serious: Yes (Death, Hospitalization)
  Sender: FDA-Public Use
  Company Number: FR-BRISTOL-MYERS SQUIBB COMPANY-16453177

PATIENT
  Age: 94 Year
  Sex: Male

DRUGS (4)
  1. DAFALGAN CAPS 500 MG [Concomitant]
     Dosage: 1 DF: 2 CAPSULES
     Route: 048
  2. RABEPRAZOLE SODIUM [Concomitant]
     Dosage: GASTRO-RESISTANT TABLET
     Route: 048
  3. BISOPROLOL FUMARATE [Concomitant]
     Dosage: FILM-COATED TABLET
     Route: 048
  4. COUMADIN [Suspect]
     Dosage: 1DF: 0.5 DF
     Route: 048
     Dates: end: 20111209

REACTIONS (4)
  - FALL [None]
  - SKULL FRACTURED BASE [None]
  - HAEMORRHAGE [None]
  - INTERNATIONAL NORMALISED RATIO INCREASED [None]
